FAERS Safety Report 16700685 (Version 1)
Quarter: 2019Q3

REPORT INFORMATION
  Report Type: Spontaneous
  Country: US (occurrence: US)
  Receive Date: 20190814
  Receipt Date: 20190814
  Transmission Date: 20191004
  Serious: No
  Sender: FDA-Public Use
  Company Number: US-LUPIN PHARMACEUTICALS INC.-2018-06048

PATIENT
  Sex: Male

DRUGS (1)
  1. LEVOFLOXACIN TABLETS USP 750 MG [Suspect]
     Active Substance: LEVOFLOXACIN
     Indication: PNEUMONIA
     Dosage: UNK
     Route: 065

REACTIONS (3)
  - Tendon rupture [Unknown]
  - Tendon disorder [Unknown]
  - Tendon pain [Unknown]
